FAERS Safety Report 20263252 (Version 1)
Quarter: 2021Q4

REPORT INFORMATION
  Report Type: Report from Study
  Country: IT (occurrence: IT)
  Receive Date: 20211231
  Receipt Date: 20211231
  Transmission Date: 20220303
  Serious: Yes (Other)
  Sender: FDA-Public Use
  Company Number: None

PATIENT
  Age: 62 Year
  Sex: Male

DRUGS (10)
  1. PEMETREXED DISODIUM [Suspect]
     Active Substance: PEMETREXED DISODIUM
     Indication: Lung adenocarcinoma
     Dosage: 1 DF
     Route: 042
     Dates: start: 20210331
  2. PEMBROLIZUMAB [Suspect]
     Active Substance: PEMBROLIZUMAB
     Indication: Lung adenocarcinoma
     Dosage: 200 MG
     Route: 042
     Dates: start: 20210331
  3. DEXAMETHASONE [Concomitant]
     Active Substance: DEXAMETHASONE
  4. PREGABALIN [Concomitant]
     Active Substance: PREGABALIN
  5. FENTANYL [Concomitant]
     Active Substance: FENTANYL
  6. AMITRIPTYLINE HYDROCHLORIDE [Concomitant]
     Active Substance: AMITRIPTYLINE HYDROCHLORIDE
  7. GRANISETRON HYDROCHLORIDE [Concomitant]
     Active Substance: GRANISETRON HYDROCHLORIDE
  8. LEVETIRACETAM [Concomitant]
     Active Substance: LEVETIRACETAM
  9. PANTOPRAZOLE [Concomitant]
     Active Substance: PANTOPRAZOLE
  10. FUROSEMIDE [Concomitant]
     Active Substance: FUROSEMIDE

REACTIONS (6)
  - Asthenia [Unknown]
  - Back pain [Unknown]
  - Anaemia [Unknown]
  - Balance disorder [Unknown]
  - Hypokalaemia [Unknown]
  - Bradykinesia [Unknown]

NARRATIVE: CASE EVENT DATE: 20210928
